FAERS Safety Report 4828287-1 (Version None)
Quarter: 2005Q4

REPORT INFORMATION
  Report Type: 
  Country: None (occurrence: None)
  Receive Date: 20051114
  Receipt Date: 20051114
  Transmission Date: 20060501
  Serious: Yes (Life-Threatening, Hospitalization)
  Sender: FDA-Public Use
  Company Number: None

PATIENT
  Age: 81 Year
  Sex: Male
  Weight: 62.5 kg

DRUGS (15)
  1. AMIODARONE [Suspect]
     Indication: ARRHYTHMIA
     Dosage: 200 MG PO BID-CHRONIC
     Route: 048
  2. AMIODARONE [Suspect]
     Indication: ATRIAL FIBRILLATION
     Dosage: 200 MG PO BID-CHRONIC
     Route: 048
  3. DOLASETRON [Suspect]
     Dosage: 12.5 MG IV Q 4 H PRN
     Route: 042
     Dates: start: 20050731, end: 20050803
  4. SYNTHROID [Concomitant]
  5. ENALAPRIL [Concomitant]
  6. COREEG [Concomitant]
  7. DILAUDID [Concomitant]
  8. ENOXAPARIN SODIUM [Concomitant]
  9. ZOSYN [Concomitant]
  10. TYLENOL (CAPLET) [Concomitant]
  11. LASIX [Concomitant]
  12. PREVACID [Concomitant]
  13. ALDACTONE [Concomitant]
  14. CARAFATE [Concomitant]
  15. COUMADIN [Concomitant]

REACTIONS (2)
  - CARDIAC ARREST [None]
  - VENTRICULAR FIBRILLATION [None]
